FAERS Safety Report 4894508-2 (Version None)
Quarter: 2006Q1

REPORT INFORMATION
  Report Type: 
  Country: None (occurrence: None)
  Receive Date: 20060127
  Receipt Date: 20060119
  Transmission Date: 20060701
  Serious: Yes (Hospitalization)
  Sender: FDA-Public Use
  Company Number: JP-JNJFOC-20060102991

PATIENT
  Age: 74 Year
  Sex: Male

DRUGS (8)
  1. RISPERDAL [Suspect]
     Route: 048
  2. RISPERDAL [Suspect]
     Indication: DRUG USE FOR UNKNOWN INDICATION
     Route: 048
  3. QUETIAPINE FUMARATE [Concomitant]
  4. LEVOMEPROMAZINE MALEATE [Concomitant]
  5. FLUNITRAZEPAM [Concomitant]
  6. QUAZEPAM [Concomitant]
  7. BIPERIDEN HYDROCHLORIDE TAB [Concomitant]
  8. SENNOSIDE [Concomitant]

REACTIONS (1)
  - PEMPHIGOID [None]
